FAERS Safety Report 13539359 (Version 8)
Quarter: 2019Q1

REPORT INFORMATION
  Report Type: Spontaneous
  Country: US (occurrence: US)
  Receive Date: 20170512
  Receipt Date: 20190218
  Transmission Date: 20190417
  Serious: No
  Sender: FDA-Public Use
  Company Number: US-PFIZER INC-2017206161

PATIENT
  Age: 53 Year
  Sex: Female
  Weight: 147.4 kg

DRUGS (8)
  1. LYRICA [Suspect]
     Active Substance: PREGABALIN
     Indication: FIBROMYALGIA
     Dosage: 150 MG (1 CAPSULE), THREE TIMES PER DAY
  2. DULOXETINE HCL [Concomitant]
     Active Substance: DULOXETINE HYDROCHLORIDE
     Indication: FIBROMYALGIA
     Dosage: 60 MG, 2X/DAY
     Dates: start: 2014
  3. ROPINIROLE HYDROCHLORIDE. [Concomitant]
     Active Substance: ROPINIROLE HYDROCHLORIDE
     Indication: DYSKINESIA
  4. ROPINIROLE HYDROCHLORIDE. [Concomitant]
     Active Substance: ROPINIROLE HYDROCHLORIDE
     Indication: PAIN IN EXTREMITY
  5. ROPINIROLE HYDROCHLORIDE. [Concomitant]
     Active Substance: ROPINIROLE HYDROCHLORIDE
     Indication: RESTLESS LEGS SYNDROME
     Dosage: 2 MG, 3X/DAY
     Dates: start: 2014
  6. LYRICA [Suspect]
     Active Substance: PREGABALIN
     Dosage: 600 MG, 1X/DAY
  7. LYRICA [Suspect]
     Active Substance: PREGABALIN
     Dosage: 200 MG, 3X/DAY
     Route: 048
  8. MELOXICAM. [Concomitant]
     Active Substance: MELOXICAM
     Indication: FIBROMYALGIA
     Dosage: 7.5 MG, 2X/DAY
     Dates: start: 2014

REACTIONS (7)
  - Laryngitis [Not Recovered/Not Resolved]
  - Malaise [Unknown]
  - Fibromyalgia [Unknown]
  - Oropharyngeal pain [Unknown]
  - Palpitations [Unknown]
  - Product use issue [Unknown]
  - Headache [Unknown]
